FAERS Safety Report 21312394 (Version 1)
Quarter: 2022Q3

REPORT INFORMATION
  Report Type: Spontaneous
  Country: US (occurrence: None)
  Receive Date: 20220909
  Receipt Date: 20220909
  Transmission Date: 20221027
  Serious: No
  Sender: FDA-Public Use
  Company Number: US-ARIS GLOBAL-202206-1039

PATIENT
  Sex: Female

DRUGS (7)
  1. OXERVATE [Suspect]
     Active Substance: CENEGERMIN-BKBJ
     Indication: Neurotrophic keratopathy
     Route: 047
     Dates: start: 20220518
  2. VASELINE PURE [Concomitant]
     Active Substance: PETROLATUM
  3. SYNTHROID [Concomitant]
     Active Substance: LEVOTHYROXINE SODIUM
  4. THERATEARS [Concomitant]
     Active Substance: CARBOXYMETHYLCELLULOSE SODIUM
  5. REFRESH CLASSIC [Concomitant]
     Active Substance: POLYVINYL ALCOHOL\POVIDONE
  6. IBUPROFEN [Concomitant]
     Active Substance: IBUPROFEN
  7. PRED FORTE [Concomitant]
     Active Substance: PREDNISOLONE ACETATE

REACTIONS (3)
  - Eye pain [Not Recovered/Not Resolved]
  - Eye discharge [Unknown]
  - Eyelid margin crusting [Unknown]
